FAERS Safety Report 14248495 (Version 1)
Quarter: 2017Q4

REPORT INFORMATION
  Report Type: Spontaneous
  Country: DE (occurrence: DE)
  Receive Date: 20171204
  Receipt Date: 20171204
  Transmission Date: 20180321
  Serious: Yes (Hospitalization)
  Sender: FDA-Public Use
  Company Number: DE-TEVA-2017-DE-827696

PATIENT
  Age: 54 Year
  Sex: Male

DRUGS (1)
  1. VALPROAT CHRONO-CT 300 MG / 500 MG RETARDTABLETTEN [Suspect]
     Active Substance: VALPROIC ACID
     Dosage: INTAKE OF DOUBLE DOSE
     Route: 048
     Dates: start: 201708

REACTIONS (2)
  - Accidental overdose [Unknown]
  - Epilepsy [Unknown]

NARRATIVE: CASE EVENT DATE: 2017
